FAERS Safety Report 6442092-4 (Version None)
Quarter: 2009Q4

REPORT INFORMATION
  Report Type: 
  Country: None (occurrence: None)
  Receive Date: 20091116
  Receipt Date: 20091103
  Transmission Date: 20100525
  Serious: Yes (Other)
  Sender: FDA-Public Use
  Company Number: PHHY2009FI47955

PATIENT
  Age: 44 Year
  Sex: Female

DRUGS (5)
  1. CYCLOSPORINE [Suspect]
     Indication: RHEUMATOID ARTHRITIS
     Dosage: 150 MG/DAY
  2. INFLIXIMAB [Concomitant]
     Indication: RHEUMATOID ARTHRITIS
     Dosage: 3 MG/KG, WEEKS 0, 2, 6
     Route: 042
  3. INFLIXIMAB [Concomitant]
     Dosage: 3 MG/KG, EVERY 8 WEEKS
     Route: 042
  4. HYDROXYCHLOROQUINE SULFATE [Concomitant]
     Indication: RHEUMATOID ARTHRITIS
     Dosage: 214 MG/DAY
  5. PREDNISOLONE [Concomitant]
     Indication: RHEUMATOID ARTHRITIS
     Dosage: 10 MG/DAY

REACTIONS (2)
  - NEUTROPENIA [None]
  - PANCYTOPENIA [None]
